FAERS Safety Report 9445281 (Version 2)
Quarter: 2013Q3

REPORT INFORMATION
  Report Type: Spontaneous
  Country: DE (occurrence: DE)
  Receive Date: 20130807
  Receipt Date: 20130918
  Transmission Date: 20140515
  Serious: Yes (Life-Threatening, Hospitalization, Other)
  Sender: FDA-Public Use
  Company Number: DE-GILEAD-2013-0080754

PATIENT
  Age: 54 Year
  Sex: Male

DRUGS (6)
  1. VIREAD [Suspect]
     Indication: CHRONIC HEPATITIS B
     Dosage: 245 MG, QD
     Route: 048
     Dates: start: 201306
  2. CANDESARTAN [Concomitant]
     Dosage: 4 DF, UNK
     Route: 048
  3. AMLODIPIN                          /00972401/ [Concomitant]
     Dosage: 5 DF, UNK
     Route: 048
  4. TORASEMID [Concomitant]
     Dosage: 5 DF, UNK
     Route: 048
  5. PANTOZOL                           /01263204/ [Concomitant]
     Dosage: 40 DF, UNK
     Route: 048
  6. ADVAGRAF [Concomitant]
     Dosage: 5 DF, UNK
     Route: 048

REACTIONS (6)
  - Renal haemorrhage [Recovered/Resolved with Sequelae]
  - Acute abdomen [Unknown]
  - Retroperitoneal haematoma [Unknown]
  - Renal failure acute [Unknown]
  - Computerised tomogram abnormal [Unknown]
  - Haemoglobin decreased [Unknown]
